FAERS Safety Report 25119526 (Version 4)
Quarter: 2025Q2

REPORT INFORMATION
  Report Type: Spontaneous
  Country: FR (occurrence: FR)
  Receive Date: 20250325
  Receipt Date: 20250519
  Transmission Date: 20250716
  Serious: Yes (Hospitalization, Other)
  Sender: MYLAN
  Company Number: FR-SANDOZ-SDZ2025FR013901

PATIENT
  Age: 24 Year
  Sex: Male

DRUGS (5)
  1. PREGABALIN [Suspect]
     Active Substance: PREGABALIN
     Indication: Product used for unknown indication
     Dosage: 2000 MILLIGRAM, QD
  2. PREGABALIN [Suspect]
     Active Substance: PREGABALIN
     Dosage: 1500 MILLIGRAM, QD
  3. PREGABALIN [Suspect]
     Active Substance: PREGABALIN
     Dosage: 1200 MILLIGRAM, QD
  4. GABAPENTIN [Suspect]
     Active Substance: GABAPENTIN
     Indication: Drug use disorder
     Dosage: 900 MILLIGRAM, QD
  5. GABAPENTIN [Suspect]
     Active Substance: GABAPENTIN
     Dosage: 3200 MILLIGRAM, QD (REACHED 3,200 MG PER DAY AFTER 1 WEEK)

REACTIONS (7)
  - Toxicity to various agents [Unknown]
  - Drug use disorder [Unknown]
  - Drug ineffective [Unknown]
  - Drug dependence [Unknown]
  - Drug abuse [Unknown]
  - Drug withdrawal syndrome [Unknown]
  - Occupational problem environmental [Unknown]
